FAERS Safety Report 7591397-2 (Version None)
Quarter: 2011Q3

REPORT INFORMATION
  Report Type: 
  Country: None (occurrence: None)
  Receive Date: 20110706
  Receipt Date: 20110623
  Transmission Date: 20111222
  Serious: Yes (Hospitalization)
  Sender: FDA-Public Use
  Company Number: US-AMGEN-USASP2011032570

PATIENT

DRUGS (3)
  1. XGEVA [Suspect]
     Indication: METASTASES TO BONE
     Dosage: 120 MG, UNK
  2. VITAMIN D [Concomitant]
     Dosage: 1000 IU, UNK
  3. CALCIUM CARBONATE [Concomitant]
     Dosage: 1250 MG, UNK

REACTIONS (3)
  - HYPOPHOSPHATAEMIA [None]
  - NEUTROPENIA [None]
  - HYPOCALCAEMIA [None]
